FAERS Safety Report 16332450 (Version 4)
Quarter: 2019Q3

REPORT INFORMATION
  Report Type: Spontaneous
  Country: US (occurrence: US)
  Receive Date: 20190520
  Receipt Date: 20190930
  Transmission Date: 20191004
  Serious: Yes (Hospitalization)
  Sender: FDA-Public Use
  Company Number: US-PFIZER INC-2019205400

PATIENT
  Age: 41 Year
  Sex: Male
  Weight: 74.4 kg

DRUGS (4)
  1. GABAPENTIN. [Concomitant]
     Active Substance: GABAPENTIN
     Dosage: 600 MG, 3X/DAY
     Dates: start: 20190715
  2. VFEND [Suspect]
     Active Substance: VORICONAZOLE
     Dosage: 300 MG, 2X/DAY (200MG TABLET AND ANOTHER TABLET AND WOULD CUT ONE IN HALF TO TAKE A TOTAL OF 300 MG)
     Route: 048
     Dates: start: 201905
  3. VFEND [Suspect]
     Active Substance: VORICONAZOLE
     Dosage: 300 MG, DAILY (50MG BOTTLES; HE TAKES 300MG A DAY TOTAL)
     Dates: start: 2019
  4. VFEND [Suspect]
     Active Substance: VORICONAZOLE
     Indication: OSTEOMYELITIS
     Dosage: 300 MG, 2X/DAY(EVERY 12 HOURS )
     Route: 048
     Dates: start: 20190316

REACTIONS (8)
  - Drug ineffective for unapproved indication [Recovering/Resolving]
  - Product prescribing error [Unknown]
  - Product prescribing error [Unknown]
  - Off label use [Unknown]
  - Muscle spasms [Unknown]
  - Product use in unapproved indication [Unknown]
  - Pain [Unknown]
  - Back pain [Unknown]

NARRATIVE: CASE EVENT DATE: 20190419
